FAERS Safety Report 6746207-X (Version None)
Quarter: 2010Q2

REPORT INFORMATION
  Report Type: 
  Country: None (occurrence: None)
  Receive Date: 20100528
  Receipt Date: 20100222
  Transmission Date: 20101027
  Serious: No
  Sender: FDA-Public Use
  Company Number: US-ASTRAZENECA-2010SE07651

PATIENT
  Age: 29 Year
  Sex: Female
  Weight: 79.4 kg

DRUGS (2)
  1. PRILOSEC [Suspect]
     Indication: GASTROOESOPHAGEAL REFLUX DISEASE
     Route: 048
  2. NARCOTICS [Concomitant]

REACTIONS (2)
  - BREATH ODOUR [None]
  - DRUG INEFFECTIVE [None]
